FAERS Safety Report 11085007 (Version 2)
Quarter: 2015Q2

REPORT INFORMATION
  Report Type: Spontaneous
  Country: US (occurrence: US)
  Receive Date: 20150503
  Receipt Date: 20150525
  Transmission Date: 20150821
  Serious: No
  Sender: FDA-Public Use
  Company Number: US-JNJFOC-20141202399

PATIENT
  Age: 79 Year
  Sex: Male

DRUGS (1)
  1. XARELTO [Suspect]
     Active Substance: RIVAROXABAN
     Indication: OEDEMA
     Route: 048
     Dates: start: 20141124

REACTIONS (6)
  - Gait disturbance [Unknown]
  - Asthenia [Unknown]
  - Product use issue [Unknown]
  - Muscular weakness [Unknown]
  - Diarrhoea [Recovered/Resolved]
  - Fatigue [Unknown]

NARRATIVE: CASE EVENT DATE: 20141124
